FAERS Safety Report 12619615 (Version 1)
Quarter: 2016Q3

REPORT INFORMATION
  Report Type: Report from Study
  Country: BR (occurrence: BR)
  Receive Date: 20160803
  Receipt Date: 20160803
  Transmission Date: 20161109
  Serious: Yes (Other)
  Sender: FDA-Public Use
  Company Number: BR-JNJFOC-20160726002

PATIENT
  Sex: Male

DRUGS (6)
  1. TRIMEBUTINE [Concomitant]
     Active Substance: TRIMEBUTINE
     Route: 065
  2. CRESTOR [Concomitant]
     Active Substance: ROSUVASTATIN CALCIUM
     Route: 065
  3. LIPLESS [Concomitant]
     Active Substance: CIPROFIBRATE
     Route: 065
  4. REMICADE [Suspect]
     Active Substance: INFLIXIMAB
     Indication: CROHN^S DISEASE
     Dosage: PATIENT STOPPED TREATMENT 2 YEARS AGO
     Route: 042
     Dates: end: 2014
  5. RABEPRAZOL [Concomitant]
     Route: 065
  6. MESALAZINE [Concomitant]
     Active Substance: MESALAMINE
     Route: 065

REACTIONS (4)
  - Infusion related reaction [Unknown]
  - Spinal pain [Unknown]
  - Hypersensitivity [Unknown]
  - Musculoskeletal stiffness [Unknown]
